FAERS Safety Report 8816921 (Version 1)
Quarter: 2012Q4

REPORT INFORMATION
  Report Type: Spontaneous
  Country: GB (occurrence: None)
  Receive Date: 20121002
  Receipt Date: 20121002
  Transmission Date: 20130627
  Serious: Yes (Other)
  Sender: FDA-Public Use
  Company Number: 2012SUN00076

PATIENT
  Age: 80 Year
  Sex: Male
  Weight: 63 kg

DRUGS (7)
  1. WARFARIN (WARFARIN) [Suspect]
     Route: 048
     Dates: start: 201006
  2. MEMANTINE [Suspect]
     Route: 048
     Dates: start: 20120730
  3. ATORVASTATIN (ATORVASTIN) [Concomitant]
  4. BISOPROLOL (BISOPROLOL) [Concomitant]
  5. FUROSEMIDE (FUROSEMIDE) [Concomitant]
  6. RAMIPRIL (RAMIPRIL) [Concomitant]
  7. SPIRONOLACTONE (SPIRONOLACTONE) [Concomitant]

REACTIONS (2)
  - Drug interaction [None]
  - International normalised ratio increased [None]
